FAERS Safety Report 9240180 (Version 1)
Quarter: 2013Q2

REPORT INFORMATION
  Report Type: Spontaneous
  Country: GB (occurrence: None)
  Receive Date: 20130417
  Receipt Date: 20130417
  Transmission Date: 20140414
  Serious: Yes (Other)
  Sender: FDA-Public Use
  Company Number: E2B_00000732

PATIENT
  Age: 54 Year
  Sex: Female

DRUGS (10)
  1. SERTRALINE [Suspect]
     Indication: ANXIETY
     Dates: start: 20120315, end: 20120413
  2. NORETHISTERONE ACETATE [Suspect]
     Indication: MENOPAUSAL SYMPTOMS
     Route: 062
     Dates: start: 201202, end: 201204
  3. NORETHISTERONE ACETATE [Suspect]
     Indication: HORMONE REPLACEMENT THERAPY
     Route: 062
     Dates: start: 201202, end: 201204
  4. DYDROGESTERON [Suspect]
     Indication: HORMONE REPLACEMENT THERAPY
     Dates: start: 2012, end: 20120820
  5. NORETHISTERON ACETATE - ESTRADIOL HEMIHYDRATE (KLIOFEM/KLIOGEST) (UNKNOWN) [Suspect]
     Indication: MENOPAUSE
     Dosage: ESTRADIOL HEMIHYDRATE 2 MG, NORETHISTERONE ACETATE 1 MG (UNKNOWN),UNKNOWN
     Dates: start: 201204, end: 20120515
  6. NORETHISTERON ACETATE - ESTRADIOL HEMIHYDRATE (KLIOFEM/KLIOGEST) (UNKNOWN) [Suspect]
     Indication: HORMONE REPLACEMENT THERAPY
     Dosage: ESTRADIOL HEMIHYDRATE 2 MG, NORETHISTERONE ACETATE 1 MG (UNKNOWN),UNKNOWN
     Dates: start: 201204, end: 20120515
  7. CITALOPRAM [Suspect]
     Indication: DEPRESSION
  8. ZOPICLONE(UNKNOWN) (ZOPICLONE) [Concomitant]
  9. MIRTAZAPINE(UNKNOWN) [Concomitant]
  10. AMITRIPTYLINE(UNKNOWN) [Concomitant]

REACTIONS (13)
  - Pain of skin [None]
  - Nerve injury [None]
  - Neuralgia [None]
  - Headache [None]
  - Toothache [None]
  - Oral pain [None]
  - Anxiety [None]
  - Vomiting [None]
  - Hypoaesthesia oral [None]
  - Hearing impaired [None]
  - Otorrhoea [None]
  - Pain [None]
  - Pruritus [None]
